FAERS Safety Report 8618799-7 (Version None)
Quarter: 2012Q3

REPORT INFORMATION
  Report Type: 
  Country: None (occurrence: None)
  Receive Date: 20120824
  Receipt Date: 20120822
  Transmission Date: 20120928
  Serious: No
  Sender: FDA-Public Use
  Company Number: US-JNJFOC-20120811380

PATIENT
  Age: 55 Year
  Sex: Female

DRUGS (2)
  1. ASACOL [Concomitant]
     Route: 065
  2. REMICADE [Suspect]
     Indication: COLITIS ULCERATIVE
     Route: 042
     Dates: start: 20111101

REACTIONS (1)
  - HERPES ZOSTER [None]
